FAERS Safety Report 9698131 (Version 1)
Quarter: 2013Q4

REPORT INFORMATION
  Report Type: Spontaneous
  Country: US (occurrence: US)
  Receive Date: 20131120
  Receipt Date: 20131120
  Transmission Date: 20140711
  Serious: Yes (Other)
  Sender: FDA-Public Use
  Company Number: US-INCYTE CORPORATION-2013IN002704

PATIENT
  Age: 50 Year
  Sex: Male

DRUGS (2)
  1. JAKAFI [Suspect]
     Indication: MYELOFIBROSIS
     Dosage: NOT SPECIFIED
     Route: 065
  2. JAKAFI [Suspect]
     Dosage: NOT SPECIFIED
     Route: 065

REACTIONS (1)
  - Graft versus host disease in lung [Recovered/Resolved]
